FAERS Safety Report 9242272 (Version 2)
Quarter: 2013Q2

REPORT INFORMATION
  Report Type: Spontaneous
  Country: US (occurrence: US)
  Receive Date: 20130419
  Receipt Date: 20130619
  Transmission Date: 20140414
  Serious: Yes (Death, Hospitalization, Other)
  Sender: FDA-Public Use
  Company Number: US-TEVA-398452USA

PATIENT
  Sex: 0

DRUGS (6)
  1. CLOZAPINE [Suspect]
  2. SIMVASTATIN [Concomitant]
  3. PROAIR [Concomitant]
  4. COGENTIN [Concomitant]
  5. DEPAKOTE [Concomitant]
  6. HALDOL [Concomitant]

REACTIONS (1)
  - Intestinal obstruction [Fatal]
